FAERS Safety Report 9044154 (Version 1)
Quarter: 2013Q1

REPORT INFORMATION
  Report Type: Spontaneous
  Country: US (occurrence: US)
  Receive Date: 20130130
  Receipt Date: 20130130
  Transmission Date: 20140127
  Serious: No
  Sender: FDA-Public Use
  Company Number: US-ABBOTT-12P-163-0954820-00

PATIENT
  Age: 56 None
  Sex: Female
  Weight: 116.22 kg

DRUGS (3)
  1. HUMIRA 40 MG/0.8 ML PEN [Suspect]
     Indication: RHEUMATOID ARTHRITIS
     Dates: start: 20111027
  2. METHOTREXATE [Concomitant]
     Indication: PRODUCT USED FOR UNKNOWN INDICATION
  3. ZOLOFT [Concomitant]
     Indication: PRODUCT USED FOR UNKNOWN INDICATION

REACTIONS (6)
  - Device malfunction [Unknown]
  - Rheumatoid arthritis [Recovering/Resolving]
  - Injection site pain [Recovering/Resolving]
  - Device malfunction [Unknown]
  - Incorrect dose administered [Unknown]
  - Incorrect dose administered [Unknown]
